FAERS Safety Report 9783322 (Version 2)
Quarter: 2014Q4

REPORT INFORMATION
  Report Type: Spontaneous
  Country: US (occurrence: US)
  Receive Date: 20131226
  Receipt Date: 20141118
  Transmission Date: 20150529
  Serious: Yes (Hospitalization, Other)
  Sender: FDA-Public Use
  Company Number: US-BAYER-2013-155501

PATIENT
  Age: 36 Year
  Sex: Female

DRUGS (8)
  1. YAZ [Suspect]
     Active Substance: DROSPIRENONE\ETHINYL ESTRADIOL
     Indication: CONTRACEPTION
     Route: 048
  2. ENOXAPARIN [Concomitant]
     Active Substance: ENOXAPARIN
  3. ACETAMINOPHEN. [Concomitant]
     Active Substance: ACETAMINOPHEN
  4. IBUPROFEN. [Concomitant]
     Active Substance: IBUPROFEN
  5. HYDROMORPHONE [Concomitant]
     Active Substance: HYDROMORPHONE
  6. DILAUDID [Concomitant]
     Active Substance: HYDROMORPHONE HYDROCHLORIDE
     Indication: PAIN
  7. OXYCODONE [Concomitant]
     Active Substance: OXYCODONE
     Dosage: UNK
     Dates: start: 20070711, end: 20070723
  8. VALIUM [Concomitant]
     Active Substance: DIAZEPAM
     Dosage: UNK
     Dates: start: 20070723

REACTIONS (3)
  - Pulmonary embolism [None]
  - Retroplacental haematoma [None]
  - Affect lability [None]

NARRATIVE: CASE EVENT DATE: 2007
